FAERS Safety Report 6788948-4 (Version None)
Quarter: 2010Q2

REPORT INFORMATION
  Report Type: 
  Country: None (occurrence: None)
  Receive Date: 20100623
  Receipt Date: 20080606
  Transmission Date: 20101027
  Serious: No
  Sender: FDA-Public Use
  Company Number: US-PFIZER INC-2008046266

PATIENT

DRUGS (1)
  1. XALATAN [Suspect]

REACTIONS (5)
  - DRY SKIN [None]
  - ERYTHEMA OF EYELID [None]
  - EYELID OEDEMA [None]
  - INCORRECT DOSE ADMINISTERED [None]
  - SKIN DISCOLOURATION [None]
